FAERS Safety Report 4603480-1 (Version None)
Quarter: 2005Q2

REPORT INFORMATION
  Report Type: 
  Country: None (occurrence: None)
  Receive Date: 20050223
  Receipt Date: 20041123
  Transmission Date: 20051028
  Serious: No
  Sender: FDA-Public Use
  Company Number: 210665

PATIENT
  Age: 76 Year
  Sex: Female

DRUGS (3)
  1. RAPTIVA [Suspect]
     Indication: PSORIASIS
     Dosage: 7 MG, 1/WEEK, SUBCUTANEOUS
     Route: 058
     Dates: start: 20040701
  2. TOPICAL CREAM (UNK INGREDIENTS)  (DERMATOLOGIC AGENT NOS) [Concomitant]
  3. LOTION (LOTION NOS) [Concomitant]

REACTIONS (1)
  - RASH MACULAR [None]
